FAERS Safety Report 4946154-X (Version None)
Quarter: 2006Q1

REPORT INFORMATION
  Report Type: 
  Country: None (occurrence: None)
  Receive Date: 20060118
  Receipt Date: 20051104
  Transmission Date: 20060701
  Serious: Yes (Other)
  Sender: FDA-Public Use
  Company Number: BDI-007702

PATIENT
  Age: 57 Year
  Sex: Female
  Weight: 61 kg

DRUGS (2)
  1. PROHANCE [Suspect]
     Indication: INTERMITTENT CLAUDICATION
     Dosage: 60 ML, ONCE, IV
     Route: 042
     Dates: start: 20051101, end: 20051101
  2. PROHANCE [Suspect]
     Indication: NUCLEAR MAGNETIC RESONANCE IMAGING
     Dosage: 60 ML, ONCE, IV
     Route: 042
     Dates: start: 20051101, end: 20051101

REACTIONS (1)
  - HYPERSENSITIVITY [None]
